FAERS Safety Report 7582796-3 (Version None)
Quarter: 2011Q2

REPORT INFORMATION
  Report Type: 
  Country: None (occurrence: None)
  Receive Date: 20110527
  Receipt Date: 20101102
  Transmission Date: 20111010
  Serious: Yes (Other)
  Sender: FDA-Public Use
  Company Number: US201010002077

PATIENT
  Age: 54 Year
  Sex: Male
  Weight: 103.9 kg

DRUGS (11)
  1. ASPIRIN [Concomitant]
  2. AMBIEN CR [Concomitant]
  3. PRAVACHOL [Concomitant]
  4. BYETTA [Suspect]
     Indication: TYPE 2 DIABETES MELLITUS
     Dosage: 5 UG, 2/M, SUBCUTANEOUS, 10 UG, 2/D, SUBCUTANEOUS
     Route: 058
     Dates: start: 20090622, end: 20090722
  5. BYETTA [Suspect]
     Indication: TYPE 2 DIABETES MELLITUS
     Dosage: 5 UG, 2/M, SUBCUTANEOUS, 10 UG, 2/D, SUBCUTANEOUS
     Route: 058
     Dates: start: 20090722, end: 20100825
  6. LISINOPRIL [Concomitant]
  7. GLIPIZIDE [Concomitant]
  8. METFORMIN HCL [Concomitant]
  9. VITAMIN TAB [Concomitant]
  10. ACTOS [Concomitant]
  11. BUPROPION (BUPROPION) [Concomitant]

REACTIONS (3)
  - NEPHROLITHIASIS [None]
  - WEIGHT DECREASED [None]
  - PANCREATITIS [None]
